FAERS Safety Report 25958823 (Version 1)
Quarter: 2025Q4

REPORT INFORMATION
  Report Type: Spontaneous
  Country: EU (occurrence: EU)
  Receive Date: 20251025
  Receipt Date: 20251025
  Transmission Date: 20260118
  Serious: Yes (Hospitalization)
  Sender: TEVA
  Company Number: None

PATIENT
  Age: 79 Year
  Sex: Female
  Weight: 87 kg

DRUGS (4)
  1. FENOFIBRATE [Interacting]
     Active Substance: FENOFIBRATE
     Indication: Product used for unknown indication
     Route: 048
     Dates: start: 20200217
  2. ATORVASTATIN [Interacting]
     Active Substance: ATORVASTATIN
     Indication: Product used for unknown indication
     Route: 048
     Dates: start: 20200717
  3. RIFADIN IV [Interacting]
     Active Substance: RIFAMPIN
     Indication: Staphylococcal infection
     Route: 042
     Dates: start: 20200731, end: 20200810
  4. DAPTOMYCIN [Interacting]
     Active Substance: DAPTOMYCIN
     Indication: Staphylococcal infection
     Route: 042
     Dates: start: 20200730, end: 20200810

REACTIONS (2)
  - Rhabdomyolysis [Recovered/Resolved]
  - Drug interaction [Unknown]

NARRATIVE: CASE EVENT DATE: 20200809
